FAERS Safety Report 12384704 (Version 3)
Quarter: 2016Q3

REPORT INFORMATION
  Report Type: Spontaneous
  Country: US (occurrence: US)
  Receive Date: 20160519
  Receipt Date: 20160810
  Transmission Date: 20161109
  Serious: No
  Sender: FDA-Public Use
  Company Number: US-PFIZER INC-2016261187

PATIENT
  Age: 57 Year
  Sex: Female

DRUGS (3)
  1. TETRACYCLINE HCL [Suspect]
     Active Substance: TETRACYCLINE HYDROCHLORIDE
     Dosage: UNK
  2. CODEINE [Suspect]
     Active Substance: CODEINE
     Dosage: UNK
  3. TRAVATAN [Suspect]
     Active Substance: TRAVOPROST
     Dosage: UNK

REACTIONS (1)
  - Drug hypersensitivity [Unknown]
